FAERS Safety Report 6570010-7 (Version None)
Quarter: 2010Q1

REPORT INFORMATION
  Report Type: 
  Country: None (occurrence: None)
  Receive Date: 20100204
  Receipt Date: 20100127
  Transmission Date: 20100710
  Serious: Yes (Hospitalization)
  Sender: FDA-Public Use
  Company Number: FR-ROCHE-665961

PATIENT
  Sex: Male
  Weight: 65 kg

DRUGS (17)
  1. MYCOPHENOLATE MOFETIL [Suspect]
     Indication: LIVER TRANSPLANT
     Dosage: FREQUENCY REPORTED AS /DAY. LAST DOSE PRIOR TO SAE ON 08 JUNE 2009.
     Route: 048
     Dates: start: 20090501
  2. TACROLIMUS [Suspect]
     Indication: LIVER TRANSPLANT
     Route: 065
     Dates: start: 20090501
  3. TACROLIMUS [Suspect]
     Route: 065
  4. CORTANCYL [Suspect]
     Indication: LIVER TRANSPLANT
     Dosage: FREQUENCY REPORTED AS /DAY.
     Route: 048
     Dates: start: 20090501
  5. CORTANCYL [Suspect]
     Dosage: FREQUENCY REPORTED AS /DAY.
     Route: 048
  6. NEXIUM [Concomitant]
     Dates: start: 20090501
  7. SECTRAL [Concomitant]
     Dates: start: 20090501
  8. XATRAL [Concomitant]
     Dates: start: 20090601
  9. XANAX [Concomitant]
     Dosage: DOSE 0.25
     Dates: start: 20090502
  10. CONTRAMAL [Concomitant]
     Dates: start: 20090506
  11. ROVALCYTE [Concomitant]
     Dates: start: 20090501
  12. QUESTRAN [Concomitant]
     Dates: start: 20090628
  13. ASPERGIC [Concomitant]
     Dates: start: 20090506
  14. PREVISCAN [Concomitant]
     Dates: start: 20090608
  15. TAZOCILLINE [Concomitant]
     Dates: start: 20090608, end: 20090611
  16. LOVENOX [Concomitant]
     Dosage: TDD REPORTED AS 0.6X2
     Dates: start: 20090608, end: 20090610
  17. NOVORAPID [Concomitant]

REACTIONS (3)
  - BILIARY ANASTOMOSIS COMPLICATION [None]
  - MEDICAL DEVICE CHANGE [None]
  - TYPE 1 DIABETES MELLITUS [None]
